FAERS Safety Report 20208874 (Version 1)
Quarter: 2021Q4

REPORT INFORMATION
  Report Type: Spontaneous
  Country: US (occurrence: US)
  Receive Date: 20211220
  Receipt Date: 20211220
  Transmission Date: 20220304
  Serious: No
  Sender: FDA-Public Use
  Company Number: US-BAUSCH-BL-2021-041632

PATIENT
  Age: 77 Year
  Sex: Female

DRUGS (2)
  1. OPCON-A [Suspect]
     Active Substance: NAPHAZOLINE HYDROCHLORIDE\PHENIRAMINE MALEATE
     Indication: Ocular hyperaemia
     Route: 047
     Dates: start: 20211211
  2. OPCON-A [Suspect]
     Active Substance: NAPHAZOLINE HYDROCHLORIDE\PHENIRAMINE MALEATE
     Indication: Eye pruritus
     Route: 047
     Dates: start: 202112

REACTIONS (1)
  - Heart rate increased [Unknown]

NARRATIVE: CASE EVENT DATE: 20211201
